FAERS Safety Report 18556978 (Version 2)
Quarter: 2020Q4

REPORT INFORMATION
  Report Type: Spontaneous
  Country: US (occurrence: US)
  Receive Date: 20201129
  Receipt Date: 20201228
  Transmission Date: 20210114
  Serious: No
  Sender: FDA-Public Use
  Company Number: NVSC2020US316297

PATIENT
  Sex: Female

DRUGS (1)
  1. PIQRAY [Suspect]
     Active Substance: ALPELISIB
     Indication: PRODUCT USED FOR UNKNOWN INDICATION
     Dosage: 300 MG, DAILY
     Route: 065

REACTIONS (6)
  - Diarrhoea [Recovered/Resolved]
  - Abnormal faeces [Unknown]
  - Flatulence [Unknown]
  - Frequent bowel movements [Unknown]
  - Nausea [Unknown]
  - Abdominal distension [Unknown]
